FAERS Safety Report 5397512-3 (Version None)
Quarter: 2007Q3

REPORT INFORMATION
  Report Type: 
  Country: None (occurrence: None)
  Receive Date: 20070726
  Receipt Date: 20070720
  Transmission Date: 20080115
  Serious: Yes (Other)
  Sender: FDA-Public Use
  Company Number: FR-ELI_LILLY_AND_COMPANY-FR200707005490

PATIENT
  Age: 72 Year
  Sex: Female

DRUGS (2)
  1. ZYPREXA [Suspect]
     Indication: DELUSION
     Dosage: 5 MG, DAILY (1/D)
     Route: 048
     Dates: start: 20070502
  2. PRAMIPEXOLE DIHYDROCHLORIDE [Concomitant]
     Indication: PARKINSON'S DISEASE
     Route: 048

REACTIONS (1)
  - ANAEMIA [None]
